FAERS Safety Report 19234773 (Version 1)
Quarter: 2021Q2

REPORT INFORMATION
  Report Type: Spontaneous
  Country: CA (occurrence: CA)
  Receive Date: 20210509
  Receipt Date: 20210509
  Transmission Date: 20210717
  Serious: Yes (Death)
  Sender: FDA-Public Use
  Company Number: CA-ROCHE-2826382

PATIENT
  Age: 54 Year
  Sex: Female

DRUGS (3)
  1. PREDNISONE. [Concomitant]
     Active Substance: PREDNISONE
  2. RITUXIMAB. [Suspect]
     Active Substance: RITUXIMAB
     Indication: SARCOIDOSIS
     Route: 042
  3. PREDNISONE. [Concomitant]
     Active Substance: PREDNISONE

REACTIONS (6)
  - Death [Fatal]
  - Disease progression [Fatal]
  - Sarcoidosis [Fatal]
  - Malaise [Fatal]
  - Off label use [Fatal]
  - Paralysis [Fatal]
